FAERS Safety Report 22117479 (Version 2)
Quarter: 2023Q1

REPORT INFORMATION
  Report Type: Report from Study
  Country: US (occurrence: US)
  Receive Date: 20230321
  Receipt Date: 20230329
  Transmission Date: 20230418
  Serious: No
  Sender: FDA-Public Use
  Company Number: US-002147023-NVSC2023US062237

PATIENT
  Sex: Male

DRUGS (2)
  1. ENTRESTO [Suspect]
     Active Substance: SACUBITRIL\VALSARTAN
     Indication: Cardiac valve disease
     Dosage: 1 MG, QD (24/26 MG)
     Route: 048
     Dates: start: 202207
  2. TORSEMIDE [Suspect]
     Active Substance: TORSEMIDE
     Indication: Fluid retention
     Dosage: 2 DOSAGE FORM, QD
     Route: 050

REACTIONS (3)
  - Fluid retention [Unknown]
  - Inappropriate schedule of product administration [Unknown]
  - Product use issue [Unknown]
